FAERS Safety Report 6235978-7 (Version None)
Quarter: 2009Q2

REPORT INFORMATION
  Report Type: 
  Country: None (occurrence: None)
  Receive Date: 20090617
  Receipt Date: 20090617
  Transmission Date: 20091009
  Serious: No
  Sender: FDA-Public Use
  Company Number: None

PATIENT
  Sex: Female
  Weight: 70.3075 kg

DRUGS (2)
  1. ZICAM COLD REMEDY NASAL GEL [Suspect]
     Indication: HYPERSENSITIVITY
     Dosage: 1 SPRAY PER NOSTRIL AS NEEDED NASAL
     Route: 045
     Dates: start: 20040101, end: 20071231
  2. ZICAM COLD REMEDY NASAL GEL [Suspect]
     Indication: NASAL CONGESTION
     Dosage: 1 SPRAY PER NOSTRIL AS NEEDED NASAL
     Route: 045
     Dates: start: 20040101, end: 20071231

REACTIONS (1)
  - HYPOSMIA [None]
